FAERS Safety Report 9292645 (Version 1)
Quarter: 2013Q2

REPORT INFORMATION
  Report Type: Spontaneous
  Country: US (occurrence: None)
  Receive Date: 20130515
  Receipt Date: 20130515
  Transmission Date: 20140414
  Serious: Yes (Disabling)
  Sender: FDA-Public Use
  Company Number: None

PATIENT
  Age: 70 Year
  Sex: Female
  Weight: 76.2 kg

DRUGS (2)
  1. LEVOFLOXACIN [Suspect]
     Indication: SURGERY
     Dosage: ONCE DAILY FOR 7 DAYS
     Dates: start: 20130404, end: 20130410
  2. LEVOFLOXACIN [Suspect]
     Dosage: ONCE DAILY FOR 7 DAYS
     Dates: start: 20130404, end: 20130410

REACTIONS (6)
  - Fatigue [None]
  - Muscular weakness [None]
  - Dizziness [None]
  - Contusion [None]
  - Swelling [None]
  - Arthropathy [None]
